FAERS Safety Report 4359672-2 (Version None)
Quarter: 2004Q2

REPORT INFORMATION
  Report Type: 
  Country: None (occurrence: None)
  Receive Date: 20040513
  Receipt Date: 20040504
  Transmission Date: 20050107
  Serious: Yes (Death, Hospitalization, Other)
  Sender: FDA-Public Use
  Company Number: 2004017000

PATIENT
  Age: 68 Year
  Sex: Male

DRUGS (15)
  1. VFEND [Suspect]
     Indication: ILL-DEFINED DISORDER
     Dosage: ORAL
     Route: 048
     Dates: start: 20040108, end: 20040115
  2. CEFTRIAXONE [Suspect]
     Indication: ILL-DEFINED DISORDER
     Dosage: SUBCUTANEOUS
     Route: 058
     Dates: start: 20040105, end: 20040115
  3. BOSENTAN (BOSENTAN) [Suspect]
     Indication: ILL-DEFINED DISORDER
     Dosage: ORAL
     Route: 048
     Dates: start: 20040108
  4. HYDROCORTISONE [Concomitant]
  5. ALPRAZOLAM [Concomitant]
  6. GABAPENTIN [Concomitant]
  7. INSULIN [Concomitant]
  8. ACENOCOUMAROL (ACENOCOUMAROL) [Concomitant]
  9. HYDROXYCHLOROQUINE SULFATE [Concomitant]
  10. PRAVASTATIN [Concomitant]
  11. ACETAMINOPHEN [Concomitant]
  12. PROPOXYPHENE HCL [Concomitant]
  13. TAMSULOSIN (TAMSULOSIN) [Concomitant]
  14. GLICLAZIDE (GLICLAZIDE) [Concomitant]
  15. FELODIPINE [Concomitant]

REACTIONS (7)
  - ALANINE AMINOTRANSFERASE INCREASED [None]
  - ASPARTATE AMINOTRANSFERASE INCREASED [None]
  - BLOOD ALKALINE PHOSPHATASE INCREASED [None]
  - BRONCHOPULMONARY ASPERGILLOSIS [None]
  - CARDIAC FAILURE [None]
  - DYSPNOEA [None]
  - PULMONARY HYPERTENSION [None]
